FAERS Safety Report 5412509-2 (Version None)
Quarter: 2007Q3

REPORT INFORMATION
  Report Type: 
  Country: None (occurrence: None)
  Receive Date: 20070813
  Receipt Date: 20070808
  Transmission Date: 20080115
  Serious: Yes (Death, Hospitalization)
  Sender: FDA-Public Use
  Company Number: A0668965A

PATIENT
  Age: 91 Year
  Sex: Male

DRUGS (2)
  1. COREG [Suspect]
     Route: 048
     Dates: start: 20020101
  2. CONCURRENT MEDICATIONS [Concomitant]

REACTIONS (4)
  - BLISTER [None]
  - BLOOD PRESSURE DECREASED [None]
  - DEATH [None]
  - FALL [None]
